FAERS Safety Report 24050871 (Version 1)
Quarter: 2024Q3

REPORT INFORMATION
  Report Type: Spontaneous
  Country: US (occurrence: US)
  Receive Date: 20240704
  Receipt Date: 20240704
  Transmission Date: 20241017
  Serious: Yes (Other)
  Sender: BRISTOL MYERS SQUIBB
  Company Number: US-BRISTOL-MYERS SQUIBB COMPANY-2024-104593

PATIENT
  Age: 82 Year
  Sex: Male

DRUGS (11)
  1. POMALYST [Suspect]
     Active Substance: POMALIDOMIDE
     Indication: Plasma cell myeloma
     Route: 048
     Dates: start: 20221114
  2. CANDESARTAN [Concomitant]
     Active Substance: CANDESARTAN
     Dates: start: 20221114
  3. DOXYLAMINE SUCCINATE [Concomitant]
     Active Substance: DOXYLAMINE SUCCINATE
     Dates: start: 20221114
  4. GABAPENTIN [Concomitant]
     Active Substance: GABAPENTIN
     Dates: start: 20221114
  5. LIDOCAINE [Concomitant]
     Active Substance: LIDOCAINE
     Dosage: PATCH
     Dates: start: 20221114
  6. MELATONIN [Concomitant]
     Active Substance: MELATONIN
     Dates: start: 20221114
  7. METOPROLOL SUCCINATE [Concomitant]
     Active Substance: METOPROLOL SUCCINATE
     Dosage: ER
     Dates: start: 20221114
  8. VITAMINS NOS [Concomitant]
     Active Substance: VITAMINS
     Dates: start: 20221114
  9. POTASSIUM [Concomitant]
     Active Substance: POTASSIUM
     Dates: start: 20221114
  10. VALACYCLOVIR [Concomitant]
     Active Substance: VALACYCLOVIR HYDROCHLORIDE
     Dates: start: 20221114
  11. XARELTO [Concomitant]
     Active Substance: RIVAROXABAN
     Dates: start: 20221114

REACTIONS (1)
  - Plasma cell myeloma [Not Recovered/Not Resolved]

NARRATIVE: CASE EVENT DATE: 20240628
